FAERS Safety Report 16067526 (Version 2)
Quarter: 2019Q2

REPORT INFORMATION
  Report Type: Report from Study
  Country: CO (occurrence: CO)
  Receive Date: 20190313
  Receipt Date: 20190603
  Transmission Date: 20190711
  Serious: Yes (Death, Other)
  Sender: FDA-Public Use
  Company Number: CO-ACTELION-A-CH2019-187464

PATIENT
  Age: 56 Year
  Sex: Female
  Weight: 60 kg

DRUGS (2)
  1. SILDENAFIL. [Concomitant]
     Active Substance: SILDENAFIL
     Indication: PRODUCT USED FOR UNKNOWN INDICATION
     Dosage: UNK
     Route: 048
  2. OPSUMIT [Suspect]
     Active Substance: MACITENTAN
     Indication: PULMONARY ARTERIAL HYPERTENSION
     Dosage: 10 MG, QD
     Route: 048
     Dates: start: 20181107, end: 2019

REACTIONS (5)
  - Wound [Recovering/Resolving]
  - Pain [Recovering/Resolving]
  - Animal bite [Recovering/Resolving]
  - Death [Fatal]
  - Inflammation [Recovering/Resolving]

NARRATIVE: CASE EVENT DATE: 201902
